FAERS Safety Report 8238222-4 (Version None)
Quarter: 2012Q1

REPORT INFORMATION
  Report Type: 
  Country: None (occurrence: None)
  Receive Date: 20120327
  Receipt Date: 20120322
  Transmission Date: 20120608
  Serious: Yes (Other)
  Sender: FDA-Public Use
  Company Number: PHHY2012BR025697

PATIENT
  Sex: Female
  Weight: 80 kg

DRUGS (5)
  1. EXFORGE [Suspect]
     Indication: HYPERTENSION
     Dosage: 1 DF (320/5 MG), DAILY
     Route: 048
  2. ALPRAZOLAM [Concomitant]
     Indication: SLEEP DISORDER
     Dosage: 1 DF (0.25 MG), QD (AT NIGHT)
     Route: 048
  3. LEXAPRO [Concomitant]
     Indication: DEPRESSION
     Dosage: 0.5 DF (15 MG), DAILY
     Route: 048
  4. CEBRALAT [Concomitant]
     Indication: MOVEMENT DISORDER
     Dosage: 2 DF (50 MG), DAILY
     Route: 048
  5. COSOPT [Concomitant]
     Indication: INTRAOCULAR PRESSURE INCREASED
     Dosage: 1 DRP (2%, EACH EYE), BID

REACTIONS (7)
  - CONFUSIONAL STATE [None]
  - VISUAL ACUITY REDUCED [None]
  - VISUAL IMPAIRMENT [None]
  - CEREBRAL ISCHAEMIA [None]
  - BLOOD PRESSURE SYSTOLIC INCREASED [None]
  - FEAR [None]
  - GAIT DISTURBANCE [None]
